FAERS Safety Report 5976634-X (Version None)
Quarter: 2008Q4

REPORT INFORMATION
  Report Type: 
  Country: None (occurrence: None)
  Receive Date: 20081201
  Receipt Date: 20081201
  Transmission Date: 20090506
  Serious: Yes (Life-Threatening, Hospitalization)
  Sender: FDA-Public Use
  Company Number: None

PATIENT
  Age: 29 Year
  Sex: Male

DRUGS (1)
  1. ISOTRETINOIN [Suspect]
     Indication: ACNE
     Dosage: 40 MG BID PO
     Route: 048
     Dates: start: 20080326, end: 20080930

REACTIONS (2)
  - DEPRESSION [None]
  - SUICIDE ATTEMPT [None]
